FAERS Safety Report 13439117 (Version 1)
Quarter: 2017Q2

REPORT INFORMATION
  Report Type: Spontaneous
  Country: US (occurrence: US)
  Receive Date: 20170413
  Receipt Date: 20170413
  Transmission Date: 20170830
  Serious: No
  Sender: FDA-Public Use
  Company Number: US-ROCHE-700770

PATIENT
  Sex: Female
  Weight: 90.7 kg

DRUGS (1)
  1. XENICAL [Suspect]
     Active Substance: ORLISTAT
     Indication: OBESITY
     Dosage: THERAPY STOPPED FOR THREE DAYS
     Route: 048

REACTIONS (7)
  - Expired product administered [Unknown]
  - Abdominal discomfort [Recovered/Resolved]
  - Drug ineffective [Unknown]
  - Sleep disorder [Not Recovered/Not Resolved]
  - Steatorrhoea [Recovered/Resolved]
  - Constipation [Not Recovered/Not Resolved]
  - Skin odour abnormal [Recovering/Resolving]
